FAERS Safety Report 9186545 (Version 1)
Quarter: 2013Q1

REPORT INFORMATION
  Report Type: Spontaneous
  Country: CA (occurrence: CA)
  Receive Date: 20130325
  Receipt Date: 20130325
  Transmission Date: 20140127
  Serious: Yes (Other)
  Sender: FDA-Public Use
  Company Number: CA-JNJFOC-20130309033

PATIENT
  Age: 73 Year
  Sex: Female
  Weight: 81.65 kg

DRUGS (9)
  1. TYLENOL [Suspect]
     Route: 048
  2. TYLENOL [Suspect]
     Indication: PAIN
     Dosage: 1300 MG ONCE IN THE MORNING AND ONCE AT NIGHT
     Route: 048
     Dates: start: 201208
  3. TYLENOL [Suspect]
     Indication: PAIN
     Route: 048
  4. TYLENOL NO. 3 [Concomitant]
     Indication: FIBROMYALGIA
     Route: 048
  5. TYLENOL NO. 1 [Concomitant]
     Indication: FIBROMYALGIA
     Dosage: 1-2 DOSES WEEKLY
     Route: 048
  6. BISOPROLOL FUMARATE [Concomitant]
     Indication: HEART RATE IRREGULAR
     Route: 065
     Dates: start: 2009
  7. OMEPRAZOLE [Concomitant]
     Indication: GASTRIC DISORDER
     Route: 065
     Dates: start: 2008
  8. CHLOROXYLENOL [Concomitant]
     Indication: GASTRIC DISORDER
     Route: 065
     Dates: start: 2008
  9. LORAZEPAM [Concomitant]
     Indication: MUSCLE RELAXANT THERAPY
     Route: 065
     Dates: start: 1979

REACTIONS (3)
  - Cystitis [Not Recovered/Not Resolved]
  - Renal disorder [Not Recovered/Not Resolved]
  - Drug effect decreased [Unknown]
